FAERS Safety Report 9613056 (Version 1)
Quarter: 2013Q3

REPORT INFORMATION
  Report Type: Spontaneous
  Country: CA (occurrence: None)
  Receive Date: 20130925
  Receipt Date: 20130925
  Transmission Date: 20140515
  Serious: Yes (Other)
  Sender: FDA-Public Use
  Company Number: CA-145476

PATIENT
  Age: 27 Year
  Sex: Female

DRUGS (1)
  1. WINRHO SDF LIQUID [Suspect]
     Indication: PROPHYLAXIS AGAINST RH ISOIMMUNISATION
     Dosage: TOTAL
     Dates: start: 20130403, end: 20130403

REACTIONS (8)
  - Wheezing [None]
  - Cough [None]
  - Dyspnoea [None]
  - Heart rate increased [None]
  - Respiratory rate increased [None]
  - Blood pressure increased [None]
  - Anaphylactic reaction [None]
  - Anaphylactoid reaction [None]
